FAERS Safety Report 6495851-6 (Version None)
Quarter: 2009Q4

REPORT INFORMATION
  Report Type: 
  Country: None (occurrence: None)
  Receive Date: 20091214
  Receipt Date: 20090826
  Transmission Date: 20100525
  Serious: No
  Sender: FDA-Public Use
  Company Number: US-BRISTOL-MYERS SQUIBB COMPANY-14749022

PATIENT
  Sex: Female

DRUGS (4)
  1. ABILIFY [Suspect]
     Dosage: WITHDRAWN AND THEN RESTARTED RESTARTED
  2. KLONOPIN [Suspect]
  3. OMEGA 3 FATTY ACID [Suspect]
     Dosage: 4DF=4 TAB
  4. GEODON [Suspect]

REACTIONS (4)
  - DECREASED APPETITE [None]
  - HYPOAESTHESIA FACIAL [None]
  - NAUSEA [None]
  - TONGUE DISCOLOURATION [None]
